FAERS Safety Report 18524083 (Version 5)
Quarter: 2021Q3

REPORT INFORMATION
  Report Type: Spontaneous
  Country: LT (occurrence: LT)
  Receive Date: 20201119
  Receipt Date: 20210803
  Transmission Date: 20211014
  Serious: Yes (Hospitalization, Other)
  Sender: FDA-Public Use
  Company Number: NVSC2020LT304848

PATIENT
  Age: 26 Year
  Sex: Female
  Weight: 48 kg

DRUGS (2)
  1. FINGOLIMOD. [Suspect]
     Active Substance: FINGOLIMOD
     Indication: PRODUCT USED FOR UNKNOWN INDICATION
     Dosage: UNK
     Route: 065
     Dates: start: 2016, end: 20200916
  2. FINGOLIMOD. [Suspect]
     Active Substance: FINGOLIMOD
     Dosage: UNK
     Route: 065
     Dates: start: 2016, end: 20200828

REACTIONS (17)
  - Dysarthria [Recovered/Resolved]
  - Dysphagia [Recovered/Resolved]
  - Asthenia [Recovered/Resolved]
  - Language disorder [Recovered/Resolved]
  - Immune reconstitution inflammatory syndrome [Recovered/Resolved]
  - Nervous system disorder [Unknown]
  - Headache [Recovered/Resolved]
  - Aphasia [Recovered/Resolved]
  - General physical health deterioration [Recovered/Resolved]
  - Visual impairment [Recovered/Resolved]
  - Facial discomfort [Recovered/Resolved]
  - Demyelination [Unknown]
  - White matter lesion [Unknown]
  - Multiple sclerosis [Unknown]
  - Cognitive disorder [Recovered/Resolved]
  - Sensory loss [Recovered/Resolved]
  - Cerebral infarction [Unknown]

NARRATIVE: CASE EVENT DATE: 202010
